FAERS Safety Report 10331276 (Version 1)
Quarter: 2014Q3

REPORT INFORMATION
  Report Type: Spontaneous
  Country: CA (occurrence: None)
  Receive Date: 20140721
  Receipt Date: 20140721
  Transmission Date: 20150326
  Serious: Yes (Hospitalization)
  Sender: FDA-Public Use
  Company Number: None

PATIENT
  Age: 75 Year
  Sex: Male
  Weight: 82.4 kg

DRUGS (4)
  1. METOPROLOL [Concomitant]
     Active Substance: METOPROLOL
  2. SORAFENIB [Suspect]
     Active Substance: SORAFENIB
  3. FRAGMIN [Concomitant]
     Active Substance: DALTEPARIN SODIUM
  4. VALSARTAN. [Concomitant]
     Active Substance: VALSARTAN

REACTIONS (4)
  - Pyrexia [None]
  - Somnolence [None]
  - Malaise [None]
  - Decreased appetite [None]

NARRATIVE: CASE EVENT DATE: 20140715
